FAERS Safety Report 10673853 (Version 2)
Quarter: 2015Q1

REPORT INFORMATION
  Report Type: Spontaneous
  Country: US (occurrence: US)
  Receive Date: 20141224
  Receipt Date: 20150211
  Transmission Date: 20150720
  Serious: Yes (Other)
  Sender: FDA-Public Use
  Company Number: US-JNJFOC-20141214762

PATIENT
  Age: 58 Year
  Sex: Male
  Weight: 99.79 kg

DRUGS (3)
  1. REMICADE [Suspect]
     Active Substance: INFLIXIMAB
     Indication: CROHN^S DISEASE
     Route: 042
  2. ZYLOPRIM [Concomitant]
     Active Substance: ALLOPURINOL
     Route: 065
  3. ESCITALOPRAM [Concomitant]
     Active Substance: ESCITALOPRAM OXALATE
     Route: 065

REACTIONS (3)
  - Crohn^s disease [Unknown]
  - Small intestinal obstruction [Unknown]
  - Non-Hodgkin^s lymphoma stage III [Recovered/Resolved]

NARRATIVE: CASE EVENT DATE: 201401
